FAERS Safety Report 18383064 (Version 1)
Quarter: 2020Q4

REPORT INFORMATION
  Report Type: Spontaneous
  Country: AU (occurrence: AU)
  Receive Date: 20201014
  Receipt Date: 20201014
  Transmission Date: 20210114
  Serious: Yes (Hospitalization, Other)
  Sender: FDA-Public Use
  Company Number: AU-NEOS THERAPEUTICS, LP-2020NEO00043

PATIENT
  Age: 35 Year
  Sex: Female

DRUGS (1)
  1. METHYLPHENIDATE. [Suspect]
     Active Substance: METHYLPHENIDATE
     Dosage: TWO 10 MG TABLETS CRUSHED
     Route: 013

REACTIONS (4)
  - Incorrect route of product administration [Recovered/Resolved]
  - Compartment syndrome [Recovered/Resolved]
  - Infarction [Recovered/Resolved]
  - Gangrene [Recovered/Resolved]
